FAERS Safety Report 25100131 (Version 1)
Quarter: 2025Q1

REPORT INFORMATION
  Report Type: Spontaneous
  Country: GB (occurrence: GB)
  Receive Date: 20250320
  Receipt Date: 20250320
  Transmission Date: 20250409
  Serious: Yes (Other)
  Sender: TORRENT PHARMA INC.
  Company Number: None

PATIENT
  Age: 47 Year
  Sex: Female
  Weight: 67 kg

DRUGS (4)
  1. QUETIAPINE [Suspect]
     Active Substance: QUETIAPINE
     Indication: Bipolar disorder
     Dosage: DOSE INCREASED FROM 250MG TO 500MG, GRADUALLY INCREASED FROM 500 MG TO 600MG IN NOV-24
     Route: 065
  2. ESTRADIOL [Concomitant]
     Active Substance: ESTRADIOL
     Indication: Menopause
     Route: 065
  3. FLUOXETINE [Concomitant]
     Active Substance: FLUOXETINE HYDROCHLORIDE
     Indication: Bipolar disorder
     Route: 065
     Dates: start: 2007
  4. LITHIUM [Concomitant]
     Active Substance: LITHIUM
     Indication: Bipolar disorder
     Route: 065
     Dates: start: 2007, end: 2020

REACTIONS (1)
  - Central hypothyroidism [Recovering/Resolving]

NARRATIVE: CASE EVENT DATE: 20250220
